FAERS Safety Report 9254420 (Version 1)
Quarter: 2013Q2

REPORT INFORMATION
  Report Type: Spontaneous
  Country: US (occurrence: None)
  Receive Date: 20130422
  Receipt Date: 20130422
  Transmission Date: 20140414
  Serious: No
  Sender: FDA-Public Use
  Company Number: None

PATIENT
  Sex: Female

DRUGS (1)
  1. COPAXONE [Suspect]
     Dosage: FROM 10/17/2012 TO ABOUT 1 MONTH AGO
     Route: 058
     Dates: start: 20121017

REACTIONS (2)
  - Swollen tongue [None]
  - Urticaria [None]
